FAERS Safety Report 6379085-1 (Version None)
Quarter: 2009Q3

REPORT INFORMATION
  Report Type: 
  Country: None (occurrence: None)
  Receive Date: 20090928
  Receipt Date: 20090916
  Transmission Date: 20100115
  Serious: Yes (Hospitalization, Other)
  Sender: FDA-Public Use
  Company Number: DE-BAYER-200932418GPV

PATIENT
  Age: 81 Year
  Sex: Female
  Weight: 72 kg

DRUGS (19)
  1. CIPROFLOXACIN HCL [Suspect]
     Indication: URINARY TRACT INFECTION
     Dosage: TOTAL DAILY DOSE: 1000 MG  UNIT DOSE: 500 MG
     Route: 048
     Dates: start: 20080820, end: 20090823
  2. CIPROFLOXACIN HYDROCHLORIDE [Suspect]
     Indication: ARTHRITIS INFECTIVE
     Route: 065
     Dates: start: 20080501
  3. ASPIRIN [Suspect]
     Indication: CORONARY ARTERY DISEASE
     Dosage: TOTAL DAILY DOSE: 100 MG  UNIT DOSE: 100 MG
     Route: 048
     Dates: start: 19950101, end: 20090909
  4. COTRIMOXAZOL ALIUD [Suspect]
     Indication: URINARY TRACT INFECTION
     Dosage: TOTAL DAILY DOSE: 2880 MG
     Route: 048
     Dates: start: 20080824, end: 20080827
  5. CLINDAMYCIN [Suspect]
     Indication: ARTHRITIS INFECTIVE
     Route: 065
     Dates: start: 20080501
  6. PREDNISOLONE [Suspect]
     Indication: ARTHRITIS INFECTIVE
     Dosage: TOTAL DAILY DOSE: 20 MG  UNIT DOSE: 20 MG
     Route: 048
     Dates: start: 20080501, end: 20080501
  7. PREDNISOLONE [Suspect]
     Dosage: TOTAL DAILY DOSE: 5 MG  UNIT DOSE: 5 MG
     Route: 048
     Dates: start: 20080501, end: 20080601
  8. VOLTAREN [Suspect]
     Indication: ARTHRITIS
     Dosage: TOTAL DAILY DOSE: 150 MG  UNIT DOSE: 75 MG
     Route: 048
     Dates: start: 20080501, end: 20080601
  9. PANTOPRAZOLE SODIUM [Suspect]
     Indication: PROPHYLAXIS AGAINST GASTROINTESTINAL ULCER
     Dosage: TOTAL DAILY DOSE: 20 MG  UNIT DOSE: 20 MG
     Route: 048
     Dates: start: 20080820
  10. LISINOPRIL [Concomitant]
     Indication: HYPERTENSION
     Dosage: TOTAL DAILY DOSE: 20 MG  UNIT DOSE: 10 MG
     Route: 048
     Dates: start: 20080501
  11. ARELIX [Concomitant]
     Indication: HYPERTENSION
     Dosage: TOTAL DAILY DOSE: 6 MG  UNIT DOSE: 6 MG
     Route: 048
     Dates: start: 19950101
  12. CALCILAC KT [Concomitant]
     Indication: OSTEOPOROSIS
     Dosage: 1 DF PER DAY
     Route: 048
     Dates: start: 20080601
  13. FOSAVANCE [Concomitant]
     Indication: OSTEOPOROSIS
     Dosage: TOTAL DAILY DOSE: 70 MG  UNIT DOSE: 70 MG
     Route: 048
     Dates: start: 20080601
  14. FOSINORM [Concomitant]
     Indication: HYPERTENSION
     Dosage: TOTAL DAILY DOSE: 20 MG  UNIT DOSE: 20 MG
     Route: 048
     Dates: start: 20080501
  15. MOXONIDINE [Concomitant]
     Indication: HYPERTENSION
     Route: 048
     Dates: start: 19900101
  16. OXYGESIC [Concomitant]
     Indication: PAIN
     Dosage: TOTAL DAILY DOSE: 40 MG  UNIT DOSE: 40 MG
     Route: 048
     Dates: start: 20080601
  17. PARACETAMOL [Concomitant]
     Indication: PAIN
     Dosage: TOTAL DAILY DOSE: 1500 MG  UNIT DOSE: 500 MG
     Route: 048
     Dates: start: 20080601, end: 20080918
  18. PRAVABETA [Concomitant]
     Indication: DYSLIPIDAEMIA
     Dosage: TOTAL DAILY DOSE: 20 MG  UNIT DOSE: 20 MG
     Route: 048
     Dates: start: 20020101
  19. VERAPAMIL [Concomitant]
     Indication: CORONARY ARTERY DISEASE
     Dosage: TOTAL DAILY DOSE: 80 MG  UNIT DOSE: 80 MG
     Route: 048
     Dates: start: 19900101

REACTIONS (2)
  - DIARRHOEA HAEMORRHAGIC [None]
  - PSEUDOMEMBRANOUS COLITIS [None]
